FAERS Safety Report 6356041-0 (Version None)
Quarter: 2009Q3

REPORT INFORMATION
  Report Type: 
  Country: None (occurrence: None)
  Receive Date: 20090915
  Receipt Date: 20090904
  Transmission Date: 20100115
  Serious: Yes (Hospitalization)
  Sender: FDA-Public Use
  Company Number: FR-SOLVAY-00209005094

PATIENT
  Age: 1049 Month
  Sex: Male

DRUGS (3)
  1. PLAVIX [Concomitant]
     Indication: DRUG USE FOR UNKNOWN INDICATION
     Dosage: DAILY DOSE:  UNKNOWN
     Route: 065
  2. PERINDOPRIL NOS [Suspect]
     Indication: HYPERTENSION
     Dosage: DAILY DOSE: 4 MILLIGRAM(S)
     Route: 048
  3. FLUDEX NOS [Suspect]
     Indication: HYPERTENSION
     Dosage: DAILY DOSE:  UNKNOWN
     Route: 048

REACTIONS (4)
  - FALL [None]
  - HYPONATRAEMIA [None]
  - MICTURITION DISORDER [None]
  - PRESYNCOPE [None]
